FAERS Safety Report 13698713 (Version 1)
Quarter: 2017Q2

REPORT INFORMATION
  Report Type: Report from Study
  Country: KR (occurrence: KR)
  Receive Date: 20170628
  Receipt Date: 20170628
  Transmission Date: 20170830
  Serious: Yes (Death, Hospitalization)
  Sender: FDA-Public Use
  Company Number: KR-EISAI MEDICAL RESEARCH-EC-2017-028844

PATIENT
  Age: 50 Year
  Sex: Female
  Weight: 54.9 kg

DRUGS (11)
  1. HALAVEN [Suspect]
     Active Substance: ERIBULIN MESYLATE
     Route: 041
     Dates: start: 20150204, end: 20150204
  2. ATIVAN [Concomitant]
     Active Substance: LORAZEPAM
  3. SANDOZ OLANZAPINE [Concomitant]
  4. DENOGAN [Concomitant]
     Active Substance: PROPACETAMOL HYDROCHLORIDE
  5. HALAVEN [Suspect]
     Active Substance: ERIBULIN MESYLATE
     Indication: BREAST CANCER METASTATIC
     Route: 041
     Dates: start: 20141211, end: 20150106
  6. ALDACTONE [Concomitant]
     Active Substance: SPIRONOLACTONE
  7. HALAVEN [Suspect]
     Active Substance: ERIBULIN MESYLATE
     Route: 041
     Dates: start: 20150117, end: 20150117
  8. MIRTAX [Concomitant]
  9. PETHIDINE [Concomitant]
     Active Substance: MEPERIDINE
  10. LASIX [Concomitant]
     Active Substance: FUROSEMIDE
  11. ACTIFED [Concomitant]
     Active Substance: PSEUDOEPHEDRINE HYDROCHLORIDE\TRIPROLIDINE HYDROCHLORIDE

REACTIONS (1)
  - Neutropenia [Recovered/Resolved]

NARRATIVE: CASE EVENT DATE: 20150210
